FAERS Safety Report 9410709 (Version 1)
Quarter: 2013Q3

REPORT INFORMATION
  Report Type: Spontaneous
  Country: US (occurrence: US)
  Receive Date: 20130719
  Receipt Date: 20130719
  Transmission Date: 20140515
  Serious: No
  Sender: FDA-Public Use
  Company Number: US-009507513-1307USA008321

PATIENT
  Age: 60 Year
  Sex: Male

DRUGS (2)
  1. PROPECIA [Suspect]
     Indication: ANDROGENETIC ALOPECIA
     Dosage: ONCE A DAY AS PRESCRIBED
     Route: 048
     Dates: start: 20130520, end: 20130712
  2. FINASTERIDE [Suspect]
     Route: 048

REACTIONS (2)
  - Erectile dysfunction [Unknown]
  - Libido decreased [Unknown]
